FAERS Safety Report 7220472-7 (Version None)
Quarter: 2011Q1

REPORT INFORMATION
  Report Type: 
  Country: None (occurrence: None)
  Receive Date: 20110111
  Receipt Date: 20101115
  Transmission Date: 20110831
  Serious: Yes (Other)
  Sender: FDA-Public Use
  Company Number: KP-GILEAD-2010-0031447

PATIENT
  Age: 66 Year
  Sex: Male

DRUGS (1)
  1. ADEFOVIR DIPIVOXIL KIT [Suspect]
     Indication: HEPATITIS B
     Route: 048

REACTIONS (8)
  - MUSCULAR WEAKNESS [None]
  - GENOTYPE DRUG RESISTANCE TEST POSITIVE [None]
  - BONE PAIN [None]
  - FEMUR FRACTURE [None]
  - DRUG INEFFECTIVE [None]
  - BLOOD ALKALINE PHOSPHATASE INCREASED [None]
  - OSTEOMALACIA [None]
  - HYPOPHOSPHATAEMIA [None]
